FAERS Safety Report 8998908 (Version 1)
Quarter: 2013Q1

REPORT INFORMATION
  Report Type: Spontaneous
  Country: GB (occurrence: GB)
  Receive Date: 20130103
  Receipt Date: 20130103
  Transmission Date: 20140127
  Serious: Yes (Hospitalization, Other)
  Sender: FDA-Public Use
  Company Number: GB-PFIZER INC-2012333946

PATIENT
  Age: 69 Year
  Sex: Male
  Weight: 73 kg

DRUGS (4)
  1. SUNITINIB MALATE [Suspect]
     Indication: PANCREATIC NEUROENDOCRINE TUMOUR METASTATIC
     Dosage: 37.5 MG, 1X/DAY
     Route: 048
     Dates: start: 20121212, end: 20121216
  2. PAMIDRONATE DISODIUM [Concomitant]
     Indication: HYPERCALCAEMIA
  3. ZOLEDRONIC ACID [Concomitant]
     Indication: MALAISE
  4. ZOLEDRONIC ACID [Concomitant]
     Indication: HYPERCALCAEMIA

REACTIONS (2)
  - Colitis ischaemic [Unknown]
  - Malaise [Unknown]
